FAERS Safety Report 7296239-0 (Version None)
Quarter: 2011Q1

REPORT INFORMATION
  Report Type: 
  Country: None (occurrence: None)
  Receive Date: 20110216
  Receipt Date: 20110208
  Transmission Date: 20110831
  Serious: Yes (Hospitalization)
  Sender: FDA-Public Use
  Company Number: SE-ASTRAZENECA-2011SE07679

PATIENT
  Age: 70 Year
  Sex: Male

DRUGS (12)
  1. XATRAL [Concomitant]
     Route: 048
  2. EMCONCOR [Concomitant]
     Route: 048
  3. PROSCAR [Concomitant]
     Route: 048
  4. IMOVANE [Concomitant]
     Route: 048
  5. KALCIPOS [Concomitant]
     Route: 048
  6. OMEPRAZOLE [Concomitant]
  7. FOLACIN [Concomitant]
     Route: 048
  8. ALVEDON [Concomitant]
     Route: 048
  9. LASIX [Suspect]
     Indication: ESSENTIAL HYPERTENSION
     Route: 048
     Dates: end: 20101007
  10. CORDARONE [Concomitant]
     Route: 048
  11. TRAMADOL HCL [Concomitant]
     Route: 048
  12. ATACAND [Suspect]
     Indication: ESSENTIAL HYPERTENSION
     Route: 048
     Dates: end: 20101007

REACTIONS (1)
  - HYPOTENSION [None]
